FAERS Safety Report 15133022 (Version 1)
Quarter: 2018Q3

REPORT INFORMATION
  Report Type: Spontaneous
  Country: IR (occurrence: IR)
  Receive Date: 20180712
  Receipt Date: 20180712
  Transmission Date: 20181010
  Serious: Yes (Other)
  Sender: FDA-Public Use
  Company Number: IR-CONCORDIA PHARMACEUTICALS INC.-GSH201807-002406

PATIENT
  Age: 62 Year
  Sex: Male

DRUGS (2)
  1. WARFARIN [Suspect]
     Active Substance: WARFARIN
  2. DIGOXIN. [Suspect]
     Active Substance: DIGOXIN

REACTIONS (2)
  - Iron deficiency anaemia [Recovered/Resolved]
  - Generalised oedema [Unknown]
